FAERS Safety Report 10711564 (Version 1)
Quarter: 2015Q1

REPORT INFORMATION
  Report Type: Spontaneous
  Country: US (occurrence: US)
  Receive Date: 20150114
  Receipt Date: 20150114
  Transmission Date: 20150721
  Serious: Yes (Death)
  Sender: FDA-Public Use
  Company Number: US-BAYER-2015-002712

PATIENT
  Age: 46 Year
  Sex: Male

DRUGS (7)
  1. CODEINE [Suspect]
     Active Substance: CODEINE
  2. ETHANOL [Suspect]
     Active Substance: ALCOHOL
  3. DIPHENHYDRAMINE + CODEINE PHOSPHATE [Suspect]
     Active Substance: CODEINE\DIPHENHYDRAMINE
  4. ROMILAR [Suspect]
     Active Substance: DEXTROMETHORPHAN HYDROBROMIDE
  5. COCAINE [Suspect]
     Active Substance: COCAINE
  6. QUININE [Suspect]
     Active Substance: QUININE
  7. HEROIN [Suspect]
     Active Substance: DIACETYLMORPHINE

REACTIONS (2)
  - Drug abuse [Fatal]
  - Intentional product misuse [None]
